FAERS Safety Report 13351327 (Version 3)
Quarter: 2017Q2

REPORT INFORMATION
  Report Type: Spontaneous
  Country: TR (occurrence: TR)
  Receive Date: 20170320
  Receipt Date: 20170621
  Transmission Date: 20170830
  Serious: Yes (Death, Hospitalization)
  Sender: FDA-Public Use
  Company Number: TR-PFIZER INC-2017110950

PATIENT
  Age: 76 Year
  Sex: Female
  Weight: 80 kg

DRUGS (3)
  1. AMLODIPINE BESILATE [Suspect]
     Active Substance: AMLODIPINE BESYLATE
     Indication: SUICIDE ATTEMPT
     Dosage: 140 MG, UNK (SIX HOURS EARLIER)
     Route: 048
  2. ASPIRIN. [Concomitant]
     Active Substance: ASPIRIN
     Dosage: UNK
  3. INSULIN [Concomitant]
     Active Substance: INSULIN NOS
     Dosage: UNK

REACTIONS (7)
  - Intentional overdose [Fatal]
  - Metabolic acidosis [Fatal]
  - Suicide attempt [Unknown]
  - Lactic acidosis [Fatal]
  - Ischaemia [Fatal]
  - Sinus bradycardia [Fatal]
  - Cardiac arrest [Fatal]
